FAERS Safety Report 6807393-6 (Version None)
Quarter: 2010Q2

REPORT INFORMATION
  Report Type: 
  Country: None (occurrence: None)
  Receive Date: 20100629
  Receipt Date: 20081014
  Transmission Date: 20101027
  Serious: No
  Sender: FDA-Public Use
  Company Number: US-PFIZER INC-2008074287

PATIENT
  Sex: Male
  Weight: 81.8 kg

DRUGS (3)
  1. XANAX [Suspect]
     Indication: ANXIETY
     Dates: start: 20070101
  2. XANAX [Suspect]
     Indication: DYSPNOEA
  3. VITAMINS [Concomitant]

REACTIONS (1)
  - DRUG SCREEN POSITIVE [None]
